FAERS Safety Report 7388000-3 (Version None)
Quarter: 2011Q2

REPORT INFORMATION
  Report Type: 
  Country: None (occurrence: None)
  Receive Date: 20110401
  Receipt Date: 20110328
  Transmission Date: 20111010
  Serious: Yes (Other)
  Sender: FDA-Public Use
  Company Number: IT-TEVA-270249ISR

PATIENT
  Age: 47 Year
  Sex: Female

DRUGS (3)
  1. LORAZEPAM [Concomitant]
  2. CLARITHROMYCIN [Suspect]
     Indication: BRONCHITIS
  3. AMITRIPTYLINE HYDROCHLORIDE [Concomitant]

REACTIONS (6)
  - PRESSURE OF SPEECH [None]
  - STATUS EPILEPTICUS [None]
  - ABNORMAL BEHAVIOUR [None]
  - AGITATION [None]
  - LETHARGY [None]
  - DYSPHORIA [None]
